FAERS Safety Report 17656145 (Version 4)
Quarter: 2020Q2

REPORT INFORMATION
  Report Type: Report from Study
  Country: None (occurrence: US)
  Receive Date: 20200410
  Receipt Date: 20200629
  Transmission Date: 20200713
  Serious: No
  Sender: FDA-Public Use
  Company Number: US-BIOVITRUM-2020US0403

PATIENT
  Age: 8 Year
  Sex: Male

DRUGS (6)
  1. METHOTREXATE. [Concomitant]
     Active Substance: METHOTREXATE
  2. KINERET [Suspect]
     Active Substance: ANAKINRA
     Indication: JUVENILE IDIOPATHIC ARTHRITIS
     Dosage: FORM STRENGTH  100 MG/0.67 ML
     Route: 058
     Dates: start: 20200116
  3. KINERET [Suspect]
     Active Substance: ANAKINRA
     Dosage: FORM STRENGTH  100 MG/0.67 ML
     Dates: start: 20200101
  4. KINERET [Suspect]
     Active Substance: ANAKINRA
     Dosage: FORM STRENGTH  100 MG/0.67 ML
     Route: 058
     Dates: start: 20200115
  5. PREDNISONE. [Concomitant]
     Active Substance: PREDNISONE
  6. FOLIC ACID. [Concomitant]
     Active Substance: FOLIC ACID

REACTIONS (18)
  - Depression [Unknown]
  - Rash [Not Recovered/Not Resolved]
  - Productive cough [Unknown]
  - Injection site swelling [Unknown]
  - Injection site extravasation [Unknown]
  - Injection site erythema [Unknown]
  - Injection site reaction [Unknown]
  - Syringe issue [Not Recovered/Not Resolved]
  - Injection site pruritus [Unknown]
  - Migraine [Unknown]
  - Skin discolouration [Unknown]
  - Injection site urticaria [Unknown]
  - Pain in extremity [Unknown]
  - Rhinorrhoea [Unknown]
  - Injection site pain [Unknown]
  - Injection site discolouration [Not Recovered/Not Resolved]
  - Product dose omission [Recovered/Resolved]
  - Off label use [Not Recovered/Not Resolved]

NARRATIVE: CASE EVENT DATE: 20200116
